FAERS Safety Report 8595990-X (Version None)
Quarter: 2012Q3

REPORT INFORMATION
  Report Type: 
  Country: None (occurrence: None)
  Receive Date: 20120815
  Receipt Date: 19950731
  Transmission Date: 20120928
  Serious: Yes (Hospitalization)
  Sender: FDA-Public Use
  Company Number: US-ROCHE-1100836

PATIENT
  Sex: Female

DRUGS (7)
  1. THIORIDAZINE HCL [Concomitant]
  2. CAPOTEN [Concomitant]
  3. HEPARIN [Concomitant]
  4. ACTIVASE [Suspect]
     Indication: ACUTE MYOCARDIAL INFARCTION
  5. MICRONASE [Concomitant]
  6. LOPRESSOR [Concomitant]
     Route: 042
  7. DOXYCYCLINE HCL [Concomitant]

REACTIONS (2)
  - CHEST PAIN [None]
  - LIP HAEMORRHAGE [None]
